FAERS Safety Report 4303488-X (Version None)
Quarter: 2004Q1

REPORT INFORMATION
  Report Type: 
  Country: None (occurrence: None)
  Receive Date: 20040224
  Receipt Date: 20040224
  Transmission Date: 20041129
  Serious: Yes (Hospitalization)
  Sender: FDA-Public Use
  Company Number: None

PATIENT
  Age: 9 Year
  Sex: Male

DRUGS (2)
  1. CARIMUNE [Suspect]
     Indication: IMMUNODEFICIENCY
     Dosage: 6 GRAMS EVERY MONTH INTRAVENOUS
     Route: 042
     Dates: start: 20010124, end: 20040124
  2. SANDOGLOBULIN [Concomitant]

REACTIONS (1)
  - TREMOR [None]
